FAERS Safety Report 10630278 (Version 2)
Quarter: 2014Q4

REPORT INFORMATION
  Report Type: Spontaneous
  Country: US (occurrence: US)
  Receive Date: 20141205
  Receipt Date: 20141205
  Transmission Date: 20150529
  Serious: No
  Sender: FDA-Public Use
  Company Number: US-BRISTOL-MYERS SQUIBB COMPANY-21248331

PATIENT
  Age: 53 Year
  Sex: Female
  Weight: 125.17 kg

DRUGS (7)
  1. PAXIL [Concomitant]
     Active Substance: PAROXETINE HYDROCHLORIDE
  2. LANTUS [Concomitant]
     Active Substance: INSULIN GLARGINE
  3. GLIPIZIDE. [Concomitant]
     Active Substance: GLIPIZIDE
  4. BYETTA [Suspect]
     Active Substance: EXENATIDE
     Indication: TYPE 2 DIABETES MELLITUS
     Dosage: JAN14-ONGOING
     Route: 058
     Dates: start: 20131016
  5. LISINOPRIL. [Concomitant]
     Active Substance: LISINOPRIL
  6. ABILIFY [Suspect]
     Active Substance: ARIPIPRAZOLE
  7. METFORMIN HCL [Concomitant]
     Active Substance: METFORMIN HYDROCHLORIDE

REACTIONS (7)
  - Drug dose omission [Unknown]
  - Glycosylated haemoglobin increased [Recovering/Resolving]
  - Treatment noncompliance [Unknown]
  - Blood glucose increased [Recovering/Resolving]
  - Injection site bruising [Not Recovered/Not Resolved]
  - Medication error [Unknown]
  - Product quality issue [Unknown]

NARRATIVE: CASE EVENT DATE: 201404
